FAERS Safety Report 14685554 (Version 2)
Quarter: 2018Q2

REPORT INFORMATION
  Report Type: Report from Study
  Country: JP (occurrence: JP)
  Receive Date: 20180327
  Receipt Date: 20180405
  Transmission Date: 20180711
  Serious: Yes (Hospitalization)
  Sender: FDA-Public Use
  Company Number: JP-DSJP-DSJ-2018-111072

PATIENT

DRUGS (7)
  1. DU-176B [Suspect]
     Active Substance: EDOXABAN TOSYLATE
     Indication: ATRIAL FIBRILLATION
     Dosage: UNK, QD
     Route: 065
     Dates: start: 20180221
  2. SPIRONOLACTONE. [Concomitant]
     Active Substance: SPIRONOLACTONE
     Indication: CARDIAC FAILURE CHRONIC
     Dosage: 25 MG, QD
     Route: 048
     Dates: start: 20180117
  3. DIART [Concomitant]
     Active Substance: AZOSEMIDE
     Indication: CARDIAC FAILURE CHRONIC
     Dosage: 60 MG, QD
     Route: 048
     Dates: start: 2017
  4. TAKECAB [Concomitant]
     Active Substance: VONOPRAZAN FUMURATE
     Indication: GASTROOESOPHAGEAL REFLUX DISEASE
     Dosage: 10 MG, QD
     Route: 048
     Dates: start: 2015
  5. ETIZOLAM [Concomitant]
     Active Substance: ETIZOLAM
     Indication: NEUROSIS
     Dosage: 1 MG, BID
     Route: 048
     Dates: start: 20060313
  6. MAGMITT [Concomitant]
     Active Substance: MAGNESIUM OXIDE
     Indication: CONSTIPATION PROPHYLAXIS
     Dosage: 500 MG, QD
     Route: 048
     Dates: start: 20091221
  7. THIURAGYL [Concomitant]
     Active Substance: PROPYLTHIOURACIL
     Indication: HYPERTHYROIDISM
     Dosage: 50 MG, QD
     Route: 048
     Dates: start: 20040107

REACTIONS (1)
  - Spinal osteoarthritis [Not Recovered/Not Resolved]

NARRATIVE: CASE EVENT DATE: 20180302
